FAERS Safety Report 21157555 (Version 2)
Quarter: 2022Q3

REPORT INFORMATION
  Report Type: Spontaneous
  Country: US (occurrence: US)
  Receive Date: 20220801
  Receipt Date: 20220829
  Transmission Date: 20221026
  Serious: Yes (Death, Hospitalization, Other)
  Sender: FDA-Public Use
  Company Number: US-009507513-2207USA008876

PATIENT
  Age: 78 Year
  Sex: Male
  Weight: 117.01 kg

DRUGS (15)
  1. KEYTRUDA [Suspect]
     Active Substance: PEMBROLIZUMAB
     Dosage: 200 MILLIGRAM
     Dates: start: 20220629
  2. ELIQUIS [Concomitant]
     Active Substance: APIXABAN
  3. BISACODYL [Concomitant]
     Active Substance: BISACODYL
     Dosage: AS NEEDED
  4. CARDIZEN [Concomitant]
     Dosage: 120MG ONCE DAILY
  5. TYLENOL PM [Concomitant]
     Active Substance: ACETAMINOPHEN\DIPHENHYDRAMINE
     Route: 048
  6. CYMBALTA [Concomitant]
     Active Substance: DULOXETINE HYDROCHLORIDE
     Dosage: 30 MILLIGRAM
  7. FERROUS GLUCONATE [Concomitant]
     Active Substance: FERROUS GLUCONATE
     Dosage: 240 MILLIGRAM
  8. LIDOCAINE [Concomitant]
     Active Substance: LIDOCAINE
  9. LORAZEPAM [Concomitant]
     Active Substance: LORAZEPAM
  10. LOSARTAN POTASSIUM [Concomitant]
     Active Substance: LOSARTAN POTASSIUM
     Dosage: 100 MILLIGRAM
  11. ZOFRAN ODT [Concomitant]
     Active Substance: ONDANSETRON HYDROCHLORIDE
     Dosage: 8 MILLIGRAM
  12. OXYCODONE [Concomitant]
     Active Substance: OXYCODONE
     Dosage: 5 MILLIGRAM
  13. OMEPRAZOLE [Concomitant]
     Active Substance: OMEPRAZOLE
     Dosage: 40 MILLIGRAM
  14. MIRALAX [Concomitant]
     Active Substance: POLYETHYLENE GLYCOL 3350
  15. SENOKOT [Concomitant]
     Active Substance: SENNOSIDES

REACTIONS (7)
  - Malignant neoplasm progression [Fatal]
  - Confusional state [Unknown]
  - Hemiparesis [Unknown]
  - Bone lesion [Unknown]
  - Bone erosion [Unknown]
  - Seizure like phenomena [Unknown]
  - Hospice care [Unknown]

NARRATIVE: CASE EVENT DATE: 20220701
